FAERS Safety Report 6356180-4 (Version None)
Quarter: 2009Q3

REPORT INFORMATION
  Report Type: 
  Country: None (occurrence: None)
  Receive Date: 20090915
  Receipt Date: 20090908
  Transmission Date: 20100115
  Serious: Yes (Hospitalization)
  Sender: FDA-Public Use
  Company Number: NL-BAYER-200931524GPV

PATIENT
  Age: 25 Year
  Sex: Female
  Weight: 80 kg

DRUGS (1)
  1. MIRENA [Suspect]
     Indication: DRUG USE FOR UNKNOWN INDICATION
     Route: 015
     Dates: start: 20080601, end: 20090801

REACTIONS (6)
  - ADNEXA UTERI PAIN [None]
  - DYSMENORRHOEA [None]
  - FATIGUE [None]
  - INTRACRANIAL PRESSURE INCREASED [None]
  - MOOD SWINGS [None]
  - UTERINE DISORDER [None]
